APPROVED DRUG PRODUCT: ORETON
Active Ingredient: METHYLTESTOSTERONE
Strength: 10MG
Dosage Form/Route: TABLET;BUCCAL
Application: A080281 | Product #001
Applicant: SCHERING CORP SUB SCHERING PLOUGH CORP
Approved: Approved Prior to Jan 1, 1982 | RLD: No | RS: No | Type: DISCN